FAERS Safety Report 6889889-4 (Version None)
Quarter: 2010Q3

REPORT INFORMATION
  Report Type: 
  Country: None (occurrence: None)
  Receive Date: 20100730
  Receipt Date: 20080609
  Transmission Date: 20110219
  Serious: No
  Sender: FDA-Public Use
  Company Number: US-PFIZER INC-2008049106

PATIENT
  Sex: Female
  Weight: 56.363 kg

DRUGS (3)
  1. LIPITOR [Suspect]
     Indication: BLOOD CHOLESTEROL INCREASED
     Dates: start: 20080501
  2. ALLEGRA D 24 HOUR [Concomitant]
  3. VITAMINS [Concomitant]

REACTIONS (1)
  - INSOMNIA [None]
